FAERS Safety Report 8115169-5 (Version None)
Quarter: 2012Q1

REPORT INFORMATION
  Report Type: 
  Country: None (occurrence: None)
  Receive Date: 20120206
  Receipt Date: 20120124
  Transmission Date: 20120608
  Serious: Yes (Hospitalization)
  Sender: FDA-Public Use
  Company Number: US-UCBSA-048890

PATIENT
  Age: 60 Year
  Sex: Male
  Weight: 83.9 kg

DRUGS (5)
  1. RHINOCORT [Concomitant]
     Indication: HYPERSENSITIVITY
     Dosage: NO OF INTAKES PER DAY-2 SPRAYS EACH NOSTRILS ONCE A DAY, TOTAL DAILY DOSE-4 SPRAYS
     Route: 045
     Dates: start: 20020101
  2. VITAMIN B-12 [Concomitant]
     Indication: PERNICIOUS ANAEMIA
  3. CIMZIA [Suspect]
     Indication: CROHN'S DISEASE
     Route: 058
     Dates: start: 20120105
  4. FLOMAX [Concomitant]
     Indication: URINARY TRACT DISORDER
     Dosage: DOSE PER INTAKE-1 CAPSULE, DAILY DOSE-1 CAPSULE; 0.4 MG DAILY
     Route: 048
     Dates: start: 19920101
  5. IRON [Concomitant]

REACTIONS (1)
  - SERUM SICKNESS [None]
